FAERS Safety Report 4655352-4 (Version None)
Quarter: 2005Q2

REPORT INFORMATION
  Report Type: 
  Country: None (occurrence: None)
  Receive Date: 20050506
  Receipt Date: 20050422
  Transmission Date: 20051028
  Serious: Yes (Disabling)
  Sender: FDA-Public Use
  Company Number: DE-BOEHRINGER INGELHEIM PHARMACEUTICALS, INC.-2005-DE-01558DE

PATIENT
  Sex: Male

DRUGS (1)
  1. ALNA [Suspect]
     Indication: DYSURIA

REACTIONS (5)
  - BLADDER DISORDER [None]
  - DRUG INEFFECTIVE [None]
  - ERECTILE DYSFUNCTION [None]
  - INTESTINAL FUNCTIONAL DISORDER [None]
  - SPINAL DISORDER [None]
